FAERS Safety Report 17360974 (Version 1)
Quarter: 2020Q1

REPORT INFORMATION
  Report Type: Spontaneous
  Country: US (occurrence: US)
  Receive Date: 20200131
  Receipt Date: 20200131
  Transmission Date: 20200409
  Serious: Yes (Death)
  Sender: FDA-Public Use
  Company Number: None

PATIENT
  Age: 71 Year
  Sex: Female

DRUGS (12)
  1. PREDNISONE TAB 10 MG [Concomitant]
  2. FUROSEMIDE TAB 40 MG [Concomitant]
  3. AMITRIPTYLIN TAB 25 MG [Concomitant]
  4. MIDODRINE TAB 20 MG [Concomitant]
  5. CARVEDILOL TAB 6.25 MG [Concomitant]
  6. VITAMIN D CAP 50000 UNIT [Concomitant]
  7. GENTAMICIN CRE 0.1% [Concomitant]
  8. RETACRIT [Suspect]
     Active Substance: EPOETIN ALFA-EPBX
     Indication: ANAEMIA
     Dosage: ?          OTHER FREQUENCY:WEEKLY;?
     Route: 058
     Dates: start: 20190213, end: 20200130
  9. OXYCOD/APAP TAB 5-325 MG [Concomitant]
  10. FOLIC ACID TAB 1000 MCG [Concomitant]
  11. PAROXETINE TAB 20 MG [Concomitant]
  12. LORATADINE TAB 10 MG [Concomitant]

REACTIONS (1)
  - Death [None]

NARRATIVE: CASE EVENT DATE: 20200123
